FAERS Safety Report 18301663 (Version 1)
Quarter: 2020Q3

REPORT INFORMATION
  Report Type: Spontaneous
  Country: CA (occurrence: CA)
  Receive Date: 20200923
  Receipt Date: 20200923
  Transmission Date: 20201103
  Serious: Yes (Other)
  Sender: FDA-Public Use
  Company Number: CA-ACCORD-201905

PATIENT
  Age: 25 Year
  Sex: Male

DRUGS (7)
  1. MYCOPHENOLATE MOFETIL/MYCOPHENOLATE SODIUM/MYCOPHENOLIC ACID [Suspect]
     Active Substance: MYCOPHENOLIC ACID
     Indication: TUBULOINTERSTITIAL NEPHRITIS
  2. PREDNISONE. [Suspect]
     Active Substance: PREDNISONE
     Indication: TUBULOINTERSTITIAL NEPHRITIS
     Dosage: 1 EVERY 1 DAYS
  3. ANTITHYMOCYTE IMMUNOGLOBULIN [Suspect]
     Active Substance: THYMOCYTE IMMUNE GLOBULIN NOS
     Indication: TUBULOINTERSTITIAL NEPHRITIS
  4. TACROLIMUS. [Suspect]
     Active Substance: TACROLIMUS
     Indication: TUBULOINTERSTITIAL NEPHRITIS
  5. IMMUNOGLOBULIN HUMAN NORMAL [Suspect]
     Active Substance: HUMAN IMMUNOGLOBULIN G
     Indication: TUBULOINTERSTITIAL NEPHRITIS
     Route: 042
  6. MYCOPHENOLIC ACID. [Suspect]
     Active Substance: MYCOPHENOLIC ACID
     Indication: IMMUNOSUPPRESSION
     Dosage: 1 EVERY 1 DAYS
  7. RITUXIMAB. [Suspect]
     Active Substance: RITUXIMAB
     Indication: TUBULOINTERSTITIAL NEPHRITIS
     Route: 041

REACTIONS (8)
  - Cytomegalovirus infection [Unknown]
  - Treatment noncompliance [Unknown]
  - Off label use [Unknown]
  - Chronic allograft nephropathy [Unknown]
  - Bacterial infection [Unknown]
  - Pneumonia viral [Unknown]
  - Drug ineffective [Unknown]
  - Pneumonia cytomegaloviral [Unknown]
